FAERS Safety Report 10680755 (Version 3)
Quarter: 2015Q4

REPORT INFORMATION
  Report Type: Spontaneous
  Country: US (occurrence: US)
  Receive Date: 20141229
  Receipt Date: 20151228
  Transmission Date: 20160304
  Serious: Yes (Hospitalization)
  Sender: FDA-Public Use
  Company Number: US-SANOFI-AVENTIS-2012SA058211

PATIENT
  Age: 56 Year
  Sex: Female
  Weight: 110 kg

DRUGS (45)
  1. PLAVIX [Suspect]
     Active Substance: CLOPIDOGREL BISULFATE
     Indication: STENT PLACEMENT
     Route: 048
     Dates: start: 20040221, end: 20120307
  2. INSULIN [Concomitant]
     Active Substance: INSULIN NOS
     Dates: start: 20031209
  3. BGSTAR LANCETS [Concomitant]
     Dates: start: 20040315
  4. ZOCOR [Concomitant]
     Active Substance: SIMVASTATIN
     Indication: BLOOD CHOLESTEROL
     Route: 048
     Dates: start: 20040427
  5. PREDNISOLONE ACETATE. [Concomitant]
     Active Substance: PREDNISOLONE ACETATE
     Dosage: DOSE: INSTILL 1 DROP IN LEFT EYE EVERY HOUR
     Dates: start: 20040312
  6. PRILOSEC [Concomitant]
     Active Substance: OMEPRAZOLE MAGNESIUM
  7. METOPROLOL [Concomitant]
     Active Substance: METOPROLOL
  8. VITAMIN D3 [Concomitant]
     Active Substance: CHOLECALCIFEROL
  9. POTASSIUM CHLORIDE. [Concomitant]
     Active Substance: POTASSIUM CHLORIDE
  10. POTASSIUM [Concomitant]
     Active Substance: POTASSIUM
     Route: 048
     Dates: start: 20040404
  11. NIFEDIPINE. [Concomitant]
     Active Substance: NIFEDIPINE
     Indication: BLOOD PRESSURE MEASUREMENT
     Dates: start: 20040305
  12. ASPIRIN. [Concomitant]
     Active Substance: ASPIRIN
  13. ALBUTEROL. [Concomitant]
     Active Substance: ALBUTEROL
  14. ECOTRIN [Suspect]
     Active Substance: ASPIRIN
     Indication: STENT PLACEMENT
     Dosage: ECOTRIN LOW STRENGTH 81 MG ORAL TBEC DR TAB
     Route: 048
     Dates: start: 1998, end: 20120307
  15. BGSTAR LANCETS [Concomitant]
     Dates: start: 20040317
  16. ZOCOR [Concomitant]
     Active Substance: SIMVASTATIN
     Indication: BLOOD CHOLESTEROL
     Route: 048
     Dates: start: 20040221
  17. NOVOLIN [Concomitant]
     Active Substance: INSULIN HUMAN
     Dosage: DOSE:5 UNIT(S)
     Route: 058
     Dates: start: 20040213
  18. LISINOPRIL. [Concomitant]
     Active Substance: LISINOPRIL
     Route: 048
     Dates: start: 20040317
  19. HYDROCODONE W/ACETAMINOPHEN [Concomitant]
     Active Substance: ACETAMINOPHEN\HYDROCODONE BITARTRATE
     Indication: PAIN
     Dosage: TAKE 1 TO 2 TABLETS ORALLY EVERY 6 HOURS AS NEEDED
     Route: 048
     Dates: start: 20040329
  20. SULFAMETHOXAZOLE [Concomitant]
     Active Substance: SULFAMETHOXAZOLE
     Indication: URINARY TRACT INFECTION
     Dates: start: 20040305
  21. ALBUTEROL SULFATE. [Concomitant]
     Active Substance: ALBUTEROL SULFATE
     Dates: start: 20040305
  22. DOXYCYCLINE HYCLATE. [Concomitant]
     Active Substance: DOXYCYCLINE HYCLATE
     Dates: start: 20040221
  23. NOVOLOG [Concomitant]
     Active Substance: INSULIN ASPART
  24. ISOSORBIDE DINITRATE. [Concomitant]
     Active Substance: ISOSORBIDE DINITRATE
     Dates: start: 20031210
  25. ACTOS [Concomitant]
     Active Substance: PIOGLITAZONE HYDROCHLORIDE
     Route: 048
     Dates: start: 20040317
  26. NITROTAB [Concomitant]
     Indication: CHEST PAIN
     Dosage: DISSOLVE 1 TABLET UNDER TONGUE EVERY 5 MINUTES AS NEEDED
     Dates: start: 20040221
  27. FLUOXETINE HYDROCHLORIDE. [Concomitant]
     Active Substance: FLUOXETINE HYDROCHLORIDE
     Indication: DEPRESSION
     Route: 048
     Dates: start: 20040428
  28. HYDRALAZINE [Concomitant]
     Active Substance: HYDRALAZINE HYDROCHLORIDE
  29. IMDUR [Concomitant]
     Active Substance: ISOSORBIDE MONONITRATE
  30. ZOCOR [Concomitant]
     Active Substance: SIMVASTATIN
     Indication: BLOOD CHOLESTEROL
     Dosage: DOSE: 5T (40MG) PO QPM
     Route: 048
     Dates: start: 20031209
  31. NOVOLIN [Concomitant]
     Active Substance: INSULIN HUMAN
     Dosage: DOSE:5 UNIT(S)
     Route: 058
     Dates: start: 20040327
  32. HYDROCODONE W/ACETAMINOPHEN [Concomitant]
     Active Substance: ACETAMINOPHEN\HYDROCODONE BITARTRATE
     Indication: PAIN
     Dosage: FREQUENCY: EVERY 4 TO 6 HOURS AS NEEDED
     Route: 048
     Dates: start: 20040312
  33. ALBUTEROL. [Concomitant]
     Active Substance: ALBUTEROL
     Dosage: INHALE 2 PUFFS 4 TIMES DAILY
     Dates: start: 20040317
  34. ROCALTROL [Concomitant]
     Active Substance: CALCITRIOL
  35. ZETIA [Concomitant]
     Active Substance: EZETIMIBE
  36. TRAZODONE [Concomitant]
     Active Substance: TRAZODONE HYDROCHLORIDE
  37. ACTOS [Concomitant]
     Active Substance: PIOGLITAZONE HYDROCHLORIDE
     Route: 048
     Dates: start: 20040221
  38. NORVASC [Concomitant]
     Active Substance: AMLODIPINE BESYLATE
  39. LIPITOR [Concomitant]
     Active Substance: ATORVASTATIN CALCIUM
  40. FUROSEMIDE. [Concomitant]
     Active Substance: FUROSEMIDE
     Route: 048
     Dates: start: 20040524
  41. NITROSTAT [Concomitant]
     Active Substance: NITROGLYCERIN
     Dates: start: 20031209
  42. LANTUS [Concomitant]
     Active Substance: INSULIN GLARGINE
  43. DILAUDID [Concomitant]
     Active Substance: HYDROMORPHONE HYDROCHLORIDE
     Indication: PAIN
  44. NOVOLIN [Concomitant]
     Active Substance: INSULIN HUMAN
     Dosage: DOSE:5 UNIT(S)
     Route: 058
     Dates: start: 20031209
  45. RANITIDINE HYDROCHLORIDE. [Concomitant]
     Active Substance: RANITIDINE HYDROCHLORIDE
     Indication: DYSPEPSIA
     Route: 048
     Dates: start: 20031209

REACTIONS (3)
  - Gastrointestinal haemorrhage [Recovered/Resolved]
  - Melaena [Recovered/Resolved]
  - Abdominal pain [Recovered/Resolved]

NARRATIVE: CASE EVENT DATE: 200406
